FAERS Safety Report 18182921 (Version 3)
Quarter: 2023Q4

REPORT INFORMATION
  Report Type: Spontaneous
  Country: US (occurrence: US)
  Receive Date: 20200821
  Receipt Date: 20231025
  Transmission Date: 20240109
  Serious: Yes (Hospitalization, Other)
  Sender: FDA-Public Use
  Company Number: US-GILEAD-2020-0491159

PATIENT
  Sex: Male

DRUGS (62)
  1. TRUVADA [Suspect]
     Active Substance: EMTRICITABINE\TENOFOVIR DISOPROXIL FUMARATE
     Indication: HIV infection
     Dosage: UNK
     Route: 048
     Dates: start: 2010
  2. TRUVADA [Suspect]
     Active Substance: EMTRICITABINE\TENOFOVIR DISOPROXIL FUMARATE
     Dosage: UNK
     Route: 048
     Dates: start: 20110602, end: 20170313
  3. ATRIPLA [Suspect]
     Active Substance: EFAVIRENZ\EMTRICITABINE\TENOFOVIR DISOPROXIL FUMARATE
     Indication: HIV infection
     Dosage: UNK
     Route: 048
     Dates: start: 2010
  4. DESCOVY [Concomitant]
     Active Substance: EMTRICITABINE\TENOFOVIR ALAFENAMIDE FUMARATE
     Indication: HIV infection
  5. EPZICOM [Concomitant]
     Active Substance: ABACAVIR SULFATE\LAMIVUDINE
     Indication: HIV infection
  6. ISENTRESS [Concomitant]
     Active Substance: RALTEGRAVIR POTASSIUM
     Indication: HIV infection
  7. KALETRA [Concomitant]
     Active Substance: LOPINAVIR\RITONAVIR
     Indication: HIV infection
  8. NORVIR [Concomitant]
     Active Substance: RITONAVIR
     Indication: HIV infection
  9. PREZCOBIX [Concomitant]
     Active Substance: COBICISTAT\DARUNAVIR ETHANOLATE
     Indication: HIV infection
  10. PREZISTA [Concomitant]
     Active Substance: DARUNAVIR ETHANOLATE
     Indication: HIV infection
  11. TIVICAY [Concomitant]
     Active Substance: DOLUTEGRAVIR SODIUM
  12. ZIAGEN [Concomitant]
     Active Substance: ABACAVIR SULFATE
     Indication: HIV infection
  13. ABACAVIR [Concomitant]
     Active Substance: ABACAVIR
     Indication: HIV infection
  14. AMLODIPINE [Concomitant]
     Active Substance: AMLODIPINE BESYLATE
  15. AMOXICILLIN\CLAVULANATE POTASSIUM [Concomitant]
     Active Substance: AMOXICILLIN\CLAVULANATE POTASSIUM
  16. AMOXICILLIN [Concomitant]
     Active Substance: AMOXICILLIN
  17. ATORVASTATIN [Concomitant]
     Active Substance: ATORVASTATIN
  18. AZITHROMYCIN [Concomitant]
     Active Substance: AZITHROMYCIN
  19. B-D INSULIN SYRINGES [Concomitant]
  20. CEFDINIR OTIC [Concomitant]
  21. CIPROFLOXACIN [Concomitant]
     Active Substance: CIPROFLOXACIN
  22. CLONIDINE [Concomitant]
     Active Substance: CLONIDINE
  23. CLOTRIMAZOLE [Concomitant]
     Active Substance: CLOTRIMAZOLE
  24. DIAZEPAM [Concomitant]
     Active Substance: DIAZEPAM
  25. DICLOFENAC [Concomitant]
     Active Substance: DICLOFENAC
  26. DOXYCYCLINE HYCLATE [Concomitant]
     Active Substance: DOXYCYCLINE HYCLATE
  27. Epivir\Lamivudine [Concomitant]
  28. FENTANYL [Concomitant]
     Active Substance: FENTANYL\FENTANYL CITRATE
  29. FINASTERIDE [Concomitant]
     Active Substance: FINASTERIDE
  30. FLUCONAZOLE [Concomitant]
     Active Substance: FLUCONAZOLE
  31. FOLIC ACID [Concomitant]
     Active Substance: FOLIC ACID
  32. FUROSEMIDE [Concomitant]
     Active Substance: FUROSEMIDE
  33. GABAPENTIN [Concomitant]
     Active Substance: GABAPENTIN
  34. HALOPERIDOL [Concomitant]
     Active Substance: HALOPERIDOL
  35. HUMALOG [Concomitant]
     Active Substance: INSULIN LISPRO
  36. ACETAMINOPHEN\HYDROCODONE [Concomitant]
     Active Substance: ACETAMINOPHEN\HYDROCODONE
  37. HYOSCYAMINE [Concomitant]
     Active Substance: HYOSCYAMINE
  38. IPRATROPIUM/ALB [Concomitant]
  39. ISOSORBIDE MONONITRATE [Concomitant]
     Active Substance: ISOSORBIDE MONONITRATE
  40. LANTUS SOLOSTAR PEN INJ [Concomitant]
  41. LEVOFLOXACIN [Concomitant]
     Active Substance: LEVOFLOXACIN
  42. LISINOPRIL [Concomitant]
     Active Substance: LISINOPRIL
  43. MAGNESIUM OXIDE [Concomitant]
     Active Substance: MAGNESIUM OXIDE
  44. MEGESTROL ACETATE [Concomitant]
     Active Substance: MEGESTROL ACETATE
  45. METHYLPREDNISOLONE [Concomitant]
     Active Substance: METHYLPREDNISOLONE
  46. METOCLOPRAMIDE [Concomitant]
     Active Substance: METOCLOPRAMIDE
  47. METOPROLOL TARTRATE [Concomitant]
     Active Substance: METOPROLOL TARTRATE
  48. MORPHINE SULFATE [Concomitant]
     Active Substance: MORPHINE SULFATE
  49. NITROFURANTOIN MONOHYDRATE MACROCRYSTALS [Concomitant]
     Active Substance: NITROFURANTOIN\NITROFURANTOIN MONOHYDRATE
  50. NITROGLYCERIN [Concomitant]
     Active Substance: NITROGLYCERIN
  51. NOVOLOG U [Concomitant]
  52. ONDANSETRON [Concomitant]
     Active Substance: ONDANSETRON
  53. OXYBUTYNIN [Concomitant]
     Active Substance: OXYBUTYNIN
  54. PANTOPRAZOLE SODIUM [Concomitant]
     Active Substance: PANTOPRAZOLE SODIUM
  55. PAROXETINE [Concomitant]
     Active Substance: PAROXETINE
  56. PHENAZOPYRIDINE [Concomitant]
     Active Substance: PHENAZOPYRIDINE
  57. POTASSIUM CLORIDE [Concomitant]
  58. PREDNISONE [Concomitant]
     Active Substance: PREDNISONE
  59. PROAIR HFA AER [Concomitant]
  60. PROMETHAZINE [Concomitant]
     Active Substance: PROMETHAZINE HYDROCHLORIDE
  61. SULFAMETHOXAZOLE\TRIMETHOPRIM [Concomitant]
     Active Substance: SULFAMETHOXAZOLE\TRIMETHOPRIM
  62. TAMSULOSIN [Concomitant]
     Active Substance: TAMSULOSIN

REACTIONS (16)
  - Chronic kidney disease [Recovered/Resolved]
  - Renal impairment [Recovered/Resolved]
  - Renal failure [Recovered/Resolved]
  - Acute kidney injury [Recovered/Resolved]
  - Renal injury [Unknown]
  - Osteoporosis [Unknown]
  - Bone demineralisation [Recovered/Resolved]
  - Emotional distress [Unknown]
  - Anxiety [Unknown]
  - Anhedonia [Unknown]
  - Pain [Unknown]
  - Blood creatinine increased [Unknown]
  - Glomerular filtration rate decreased [Unknown]
  - Vitamin D deficiency [Recovered/Resolved]
  - Calcium deficiency [Recovered/Resolved]
  - Depression [Recovered/Resolved]

NARRATIVE: CASE EVENT DATE: 20170101
